FAERS Safety Report 9925255 (Version 1)
Quarter: 2014Q1

REPORT INFORMATION
  Report Type: Spontaneous
  Country: US (occurrence: US)
  Receive Date: 20140226
  Receipt Date: 20140226
  Transmission Date: 20141002
  Serious: Yes (Other)
  Sender: FDA-Public Use
  Company Number: US-BRACCO-010015

PATIENT
  Age: 69 Year
  Sex: Male

DRUGS (4)
  1. ISOVUE [Suspect]
     Indication: ANGIOGRAM
     Route: 042
     Dates: start: 20131002, end: 20131002
  2. ANTACID [Concomitant]
  3. IRON [Concomitant]
  4. CRESTOR [Concomitant]

REACTIONS (1)
  - Hypersensitivity [Recovering/Resolving]
